FAERS Safety Report 19739915 (Version 1)
Quarter: 2021Q3

REPORT INFORMATION
  Report Type: Spontaneous
  Country: HR (occurrence: HR)
  Receive Date: 20210823
  Receipt Date: 20210823
  Transmission Date: 20211014
  Serious: Yes (Hospitalization, Other)
  Sender: FDA-Public Use
  Company Number: HR-AMICI-2021AMILIT00024

PATIENT
  Age: 46 Year
  Sex: Female

DRUGS (16)
  1. FENOFIBRATE;SIMVASTATIN [Suspect]
     Active Substance: FENOFIBRATE\SIMVASTATIN
     Dosage: 145/40 MG
     Route: 065
  2. METHYLPREDNISOLONE. [Interacting]
     Active Substance: METHYLPREDNISOLONE
     Indication: LIVER INJURY
     Dosage: 250 MG/DAY
     Route: 048
  3. CEFUROXIME. [Interacting]
     Active Substance: CEFUROXIME
     Indication: LIVER INJURY
     Route: 048
  4. FUROSEMIDE. [Suspect]
     Active Substance: FUROSEMIDE
     Indication: PRODUCT USED FOR UNKNOWN INDICATION
     Dosage: 40 MG/DAY
     Route: 065
  5. METHYLPREDNISOLONE. [Interacting]
     Active Substance: METHYLPREDNISOLONE
     Indication: ACUTE KIDNEY INJURY
     Dosage: 250 MG/DAY
     Route: 042
  6. PREDNISONE. [Interacting]
     Active Substance: PREDNISONE
     Indication: URINARY TRACT INFECTION
     Dosage: 60 MG PER DAY
     Route: 065
  7. FENOFIBRATE;SIMVASTATIN [Suspect]
     Active Substance: FENOFIBRATE\SIMVASTATIN
     Indication: PRODUCT USED FOR UNKNOWN INDICATION
     Dosage: 145/20 MG
     Route: 065
  8. METHYLPREDNISOLONE. [Interacting]
     Active Substance: METHYLPREDNISOLONE
     Route: 065
  9. CALCITRIOL. [Interacting]
     Active Substance: CALCITRIOL
     Indication: ACUTE KIDNEY INJURY
     Dosage: 0.25 MICRO GRAM
     Route: 065
  10. DICLOFENAC [Suspect]
     Active Substance: DICLOFENAC
     Indication: MIGRAINE
     Dosage: 150?200 MG/DAY
     Route: 065
  11. PANTOPRAZOLE [Suspect]
     Active Substance: PANTOPRAZOLE
     Indication: PRODUCT USED FOR UNKNOWN INDICATION
     Dosage: 40 MG/DAY
     Route: 065
  12. CALCIUM CARBONATE. [Interacting]
     Active Substance: CALCIUM CARBONATE
     Indication: ACUTE KIDNEY INJURY
     Route: 065
  13. PROPRANOLOL [Interacting]
     Active Substance: PROPRANOLOL HYDROCHLORIDE
     Indication: LIVER INJURY
     Route: 065
  14. ATORVASTATIN [Suspect]
     Active Substance: ATORVASTATIN
     Indication: DYSLIPIDAEMIA
     Dosage: 20 MG/DAY
     Route: 065
  15. CEFTRIAXONE. [Suspect]
     Active Substance: CEFTRIAXONE
     Indication: URINARY TRACT INFECTION
     Dosage: 1 G/DAY
     Route: 042
  16. SULPHAMETHOXAZOLE + TRIMETHOPRIM [Suspect]
     Active Substance: SULFAMETHOXAZOLE\TRIMETHOPRIM
     Indication: URINARY TRACT INFECTION
     Dosage: 400/80 MG BID
     Route: 065

REACTIONS (22)
  - Chills [Recovered/Resolved]
  - Hyperhidrosis [Recovered/Resolved]
  - Dyspnoea [Recovered/Resolved]
  - Liver injury [Recovered/Resolved]
  - Acute kidney injury [Recovered/Resolved]
  - Renal impairment [Recovered/Resolved]
  - Anaemia [Recovered/Resolved]
  - Hypocalcaemia [Recovered/Resolved]
  - Drug interaction [Unknown]
  - Urinary tract infection [Recovered/Resolved]
  - Asthenia [Recovered/Resolved]
  - Enterococcal infection [Recovering/Resolving]
  - Hypokalaemia [Recovered/Resolved]
  - Cough [Recovered/Resolved]
  - Nephrosclerosis [Recovered/Resolved]
  - Anuria [Recovered/Resolved]
  - Oedema peripheral [Recovered/Resolved]
  - Ascites [Recovered/Resolved]
  - Dyslipidaemia [Recovered/Resolved]
  - Oliguria [Recovered/Resolved]
  - Nephrotic syndrome [Recovered/Resolved]
  - Pneumonia [Recovered/Resolved]
